FAERS Safety Report 25090251 (Version 1)
Quarter: 2025Q1

REPORT INFORMATION
  Report Type: Spontaneous
  Country: US (occurrence: US)
  Receive Date: 20250318
  Receipt Date: 20250318
  Transmission Date: 20250409
  Serious: Yes (Hospitalization, Other)
  Sender: ALEXION PHARMACEUTICALS
  Company Number: US-AstraZeneca-CH-00824988A

PATIENT
  Age: 53 Year

DRUGS (2)
  1. QUETIAPINE FUMARATE [Suspect]
     Active Substance: QUETIAPINE FUMARATE
     Route: 065
  2. QUETIAPINE FUMARATE [Suspect]
     Active Substance: QUETIAPINE FUMARATE
     Route: 065

REACTIONS (25)
  - Insomnia [Not Recovered/Not Resolved]
  - Constipation [Recovering/Resolving]
  - Urinary retention [Unknown]
  - Toxicity to various agents [Unknown]
  - Muscle twitching [Unknown]
  - Weight increased [Unknown]
  - Oedema [Recovering/Resolving]
  - Therapy cessation [Recovering/Resolving]
  - Decreased appetite [Unknown]
  - Myalgia [Recovering/Resolving]
  - Muscle spasms [Recovering/Resolving]
  - Foot fracture [Unknown]
  - Fall [Unknown]
  - Foot fracture [Not Recovered/Not Resolved]
  - Renal pain [Recovering/Resolving]
  - Renal cyst [Recovering/Resolving]
  - Hypertension [Unknown]
  - Tachycardia [Unknown]
  - Dizziness [Not Recovered/Not Resolved]
  - Anaemia [Unknown]
  - Therapy interrupted [Not Recovered/Not Resolved]
  - Withdrawal syndrome [Unknown]
  - Head injury [Unknown]
  - Faecaloma [Recovering/Resolving]
  - Bone density decreased [Unknown]
